FAERS Safety Report 24597809 (Version 1)
Quarter: 2024Q4

REPORT INFORMATION
  Report Type: Spontaneous
  Country: US (occurrence: US)
  Receive Date: 20241110
  Receipt Date: 20241110
  Transmission Date: 20250115
  Serious: No
  Sender: SANOFI AVENTIS
  Company Number: US-SANOFI-02271025

PATIENT
  Sex: Male

DRUGS (2)
  1. MULTAQ [Suspect]
     Active Substance: DRONEDARONE
     Indication: Atrial fibrillation
     Dosage: UNK
  2. DULOXETINE [Concomitant]
     Active Substance: DULOXETINE
     Dosage: ON LOWEST DOSE

REACTIONS (1)
  - Anxiety [Not Recovered/Not Resolved]
